FAERS Safety Report 16092484 (Version 3)
Quarter: 2019Q1

REPORT INFORMATION
  Report Type: Spontaneous
  Country: DE (occurrence: DE)
  Receive Date: 20190319
  Receipt Date: 20190319
  Transmission Date: 20190418
  Serious: Yes (Hospitalization, Other)
  Sender: FDA-Public Use
  Company Number: PHHY2019DE058618

PATIENT
  Age: 51 Year
  Sex: Male
  Weight: 80 kg

DRUGS (13)
  1. PREDNISOLONE. [Suspect]
     Active Substance: PREDNISOLONE
     Indication: PRODUCT USED FOR UNKNOWN INDICATION
     Dosage: 20 MG, QD
     Route: 048
  2. CELLCEPT [Suspect]
     Active Substance: MYCOPHENOLATE MOFETIL\MYCOPHENOLATE MOFETIL HYDROCHLORIDE
     Indication: RENAL TRANSPLANT
     Dosage: 1.5 G, QD
     Route: 065
  3. DARBEPOETIN ALFA [Suspect]
     Active Substance: DARBEPOETIN ALFA
     Indication: NEPHROGENIC ANAEMIA
     Dosage: UNK
     Route: 065
     Dates: start: 20170706, end: 20180329
  4. PROGRAF [Suspect]
     Active Substance: TACROLIMUS\TACROLIMUS ANHYDROUS
     Dosage: 14 MG, QD
     Route: 048
     Dates: start: 20180622
  5. CELLCEPT [Suspect]
     Active Substance: MYCOPHENOLATE MOFETIL\MYCOPHENOLATE MOFETIL HYDROCHLORIDE
     Dosage: 2 G, QD
     Route: 048
     Dates: start: 20180622, end: 20180630
  6. CELLCEPT [Suspect]
     Active Substance: MYCOPHENOLATE MOFETIL\MYCOPHENOLATE MOFETIL HYDROCHLORIDE
     Dosage: 1.5 G, QD
     Route: 065
  7. PROGRAF [Suspect]
     Active Substance: TACROLIMUS\TACROLIMUS ANHYDROUS
     Indication: RENAL TRANSPLANT
     Dosage: 7 MG, QD
     Route: 065
  8. TACROLIMUS. [Suspect]
     Active Substance: TACROLIMUS
     Indication: RENAL TRANSPLANT
     Dosage: 7 MG, QD
     Route: 048
  9. DAPRODUSTAT [Suspect]
     Active Substance: DAPRODUSTAT
     Indication: NEPHROGENIC ANAEMIA
     Dosage: UNK
     Route: 065
     Dates: start: 20170706, end: 20180329
  10. ANTITHYMOCYTE IMMUNOGLOBULIN [Suspect]
     Active Substance: THYMOCYTE IMMUNE GLOBULIN NOS
     Dosage: 1.5 MG/KG, UNK
     Route: 042
  11. PREDNISOLONE. [Suspect]
     Active Substance: PREDNISOLONE
     Dosage: 7.5 MG, QD
     Route: 048
     Dates: start: 20180622
  12. EPOETIN ALFA [Suspect]
     Active Substance: ERYTHROPOIETIN
     Indication: NEPHROGENIC ANAEMIA
     Dosage: UNK
     Route: 065
     Dates: start: 20170706, end: 20180329
  13. ANTITHYMOCYTE IMMUNOGLOBULIN [Suspect]
     Active Substance: THYMOCYTE IMMUNE GLOBULIN NOS
     Indication: RENAL TRANSPLANT
     Dosage: 1.5 MG/KG, UNK
     Route: 048
     Dates: start: 20180621, end: 20180624

REACTIONS (2)
  - Urinary tract infection [Recovered/Resolved]
  - Polyomavirus-associated nephropathy [Not Recovered/Not Resolved]

NARRATIVE: CASE EVENT DATE: 2018
